FAERS Safety Report 24288427 (Version 1)
Quarter: 2024Q3

REPORT INFORMATION
  Report Type: Spontaneous
  Country: GB (occurrence: GB)
  Receive Date: 20240906
  Receipt Date: 20240906
  Transmission Date: 20241017
  Serious: Yes (Other)
  Sender: MERCK
  Company Number: GB-009507513-2408GBR010711

PATIENT
  Age: 58 Year
  Sex: Male

DRUGS (3)
  1. PEMBROLIZUMAB [Suspect]
     Active Substance: PEMBROLIZUMAB
     Indication: Clear cell renal cell carcinoma
     Dosage: 3-WEEKLY CYCLES
  2. AMLODIPINE [Concomitant]
     Active Substance: AMLODIPINE BESYLATE
  3. ATORVASTATIN [Concomitant]
     Active Substance: ATORVASTATIN

REACTIONS (4)
  - Seronegative arthritis [Unknown]
  - Immune-mediated hypothyroidism [Unknown]
  - Localised infection [Recovering/Resolving]
  - Lichenoid keratosis [Recovering/Resolving]
